FAERS Safety Report 8223785-5 (Version None)
Quarter: 2012Q1

REPORT INFORMATION
  Report Type: 
  Country: None (occurrence: None)
  Receive Date: 20120321
  Receipt Date: 20120321
  Transmission Date: 20120608
  Serious: Yes (Life-Threatening)
  Sender: FDA-Public Use
  Company Number: None

PATIENT
  Age: 80 Year
  Sex: Male
  Weight: 67.95 kg

DRUGS (1)
  1. LEXISCAN [Suspect]

REACTIONS (3)
  - PRESYNCOPE [None]
  - BLOOD PRESSURE DECREASED [None]
  - HEART RATE DECREASED [None]
